FAERS Safety Report 6216949-3 (Version None)
Quarter: 2009Q2

REPORT INFORMATION
  Report Type: 
  Country: None (occurrence: None)
  Receive Date: 20090604
  Receipt Date: 20090522
  Transmission Date: 20091009
  Serious: Yes (Life-Threatening, Hospitalization, Other)
  Sender: FDA-Public Use
  Company Number: 2009AP002118

PATIENT
  Age: 28 Year
  Sex: Male

DRUGS (1)
  1. VALPROIC ACID SYRUP [Suspect]
     Indication: SCHIZOPHRENIA

REACTIONS (4)
  - DRUG TOXICITY [None]
  - ENCEPHALOPATHY [None]
  - INTENTIONAL OVERDOSE [None]
  - SUICIDE ATTEMPT [None]
